FAERS Safety Report 13409310 (Version 2)
Quarter: 2017Q4

REPORT INFORMATION
  Report Type: Spontaneous
  Country: US (occurrence: US)
  Receive Date: 20170406
  Receipt Date: 20171123
  Transmission Date: 20180320
  Serious: No
  Sender: FDA-Public Use
  Company Number: US-JNJFOC-20170123735

PATIENT
  Sex: Male

DRUGS (20)
  1. RISPERDAL [Suspect]
     Active Substance: RISPERIDONE
     Indication: AGGRESSION
     Dosage: IN VARYING DOSE OF 01 AND 02 MG
     Route: 048
     Dates: start: 20081230, end: 20090522
  2. RISPERDAL [Suspect]
     Active Substance: RISPERIDONE
     Indication: MANIA
     Dosage: IN VARYING OF 0.5, 01 AND 02 MG
     Route: 048
     Dates: start: 20040326, end: 20081027
  3. RISPERIDONE. [Suspect]
     Active Substance: RISPERIDONE
     Indication: ATTENTION DEFICIT/HYPERACTIVITY DISORDER
     Dosage: IN VARYING OF 0.5, 01 AND 02 MG
     Route: 048
     Dates: start: 20090623, end: 20091214
  4. RISPERIDONE. [Suspect]
     Active Substance: RISPERIDONE
     Indication: MANIA
     Dosage: IN VARYING OF 0.5, 01 AND 02 MG
     Route: 048
     Dates: start: 20090623, end: 20091214
  5. RISPERIDONE. [Suspect]
     Active Substance: RISPERIDONE
     Indication: IRRITABILITY
     Route: 048
     Dates: start: 20081128
  6. RISPERDAL [Suspect]
     Active Substance: RISPERIDONE
     Indication: ATTENTION DEFICIT/HYPERACTIVITY DISORDER
     Dosage: IN VARYING DOSE OF 01 AND 02 MG
     Route: 048
     Dates: start: 20081230, end: 20090522
  7. RISPERDAL [Suspect]
     Active Substance: RISPERIDONE
     Indication: IRRITABILITY
     Dosage: IN VARYING OF 0.5, 01 AND 02 MG
     Route: 048
     Dates: start: 20040326, end: 20081027
  8. RISPERDAL [Suspect]
     Active Substance: RISPERIDONE
     Indication: IRRITABILITY
     Dosage: IN VARYING DOSE OF 01 AND 02 MG
     Route: 048
     Dates: start: 20081230, end: 20090522
  9. RISPERDAL [Suspect]
     Active Substance: RISPERIDONE
     Indication: AGGRESSION
     Dosage: IN VARYING OF 0.5, 01 AND 02 MG
     Route: 048
     Dates: start: 20040326, end: 20081027
  10. RISPERIDONE. [Suspect]
     Active Substance: RISPERIDONE
     Indication: BIPOLAR DISORDER
     Route: 048
     Dates: start: 20081128
  11. RISPERDAL [Suspect]
     Active Substance: RISPERIDONE
     Indication: BIPOLAR DISORDER
     Dosage: IN VARYING DOSE OF 01 AND 02 MG
     Route: 048
     Dates: start: 20081230, end: 20090522
  12. RISPERDAL [Suspect]
     Active Substance: RISPERIDONE
     Indication: ATTENTION DEFICIT/HYPERACTIVITY DISORDER
     Dosage: IN VARYING OF 0.5, 01 AND 02 MG
     Route: 048
     Dates: start: 20040326, end: 20081027
  13. RISPERDAL [Suspect]
     Active Substance: RISPERIDONE
     Indication: BIPOLAR DISORDER
     Dosage: IN VARYING OF 0.5, 01 AND 02 MG
     Route: 048
     Dates: start: 20040326, end: 20081027
  14. RISPERDAL [Suspect]
     Active Substance: RISPERIDONE
     Indication: MANIA
     Dosage: IN VARYING DOSE OF 01 AND 02 MG
     Route: 048
     Dates: start: 20081230, end: 20090522
  15. RISPERIDONE. [Suspect]
     Active Substance: RISPERIDONE
     Indication: ATTENTION DEFICIT/HYPERACTIVITY DISORDER
     Route: 048
     Dates: start: 20081128
  16. RISPERIDONE. [Suspect]
     Active Substance: RISPERIDONE
     Indication: AGGRESSION
     Route: 048
     Dates: start: 20081128
  17. RISPERIDONE. [Suspect]
     Active Substance: RISPERIDONE
     Indication: BIPOLAR DISORDER
     Dosage: IN VARYING OF 0.5, 01 AND 02 MG
     Route: 048
     Dates: start: 20090623, end: 20091214
  18. RISPERIDONE. [Suspect]
     Active Substance: RISPERIDONE
     Indication: MANIA
     Route: 048
     Dates: start: 20081128
  19. RISPERIDONE. [Suspect]
     Active Substance: RISPERIDONE
     Indication: IRRITABILITY
     Dosage: IN VARYING OF 0.5, 01 AND 02 MG
     Route: 048
     Dates: start: 20090623, end: 20091214
  20. RISPERIDONE. [Suspect]
     Active Substance: RISPERIDONE
     Indication: AGGRESSION
     Dosage: IN VARYING OF 0.5, 01 AND 02 MG
     Route: 048
     Dates: start: 20090623, end: 20091214

REACTIONS (3)
  - Obesity [Unknown]
  - Emotional disorder [Unknown]
  - Gynaecomastia [Unknown]

NARRATIVE: CASE EVENT DATE: 2005
